FAERS Safety Report 6335448-1 (Version None)
Quarter: 2009Q3

REPORT INFORMATION
  Report Type: 
  Country: None (occurrence: None)
  Receive Date: 20090831
  Receipt Date: 20090817
  Transmission Date: 20100115
  Serious: Yes (Hospitalization)
  Sender: FDA-Public Use
  Company Number: JP-MYLANLABS-2009S1014616

PATIENT
  Age: 61 Year
  Sex: Female
  Weight: 54 kg

DRUGS (8)
  1. AMLODIPINE [Suspect]
     Indication: HYPERTENSION
  2. CANDESARTAN CILEXETIL [Suspect]
     Indication: HYPERTENSION
  3. PROPOFOL [Concomitant]
     Indication: INDUCTION OF ANAESTHESIA
  4. VECURONIUM BROMIDE [Concomitant]
     Indication: INDUCTION OF ANAESTHESIA
  5. PIPERACILLIN [Concomitant]
     Indication: ANTIBIOTIC PROPHYLAXIS
     Route: 042
  6. SEVOFLURANE [Concomitant]
     Indication: MAINTENANCE OF ANAESTHESIA
     Dosage: 2-5%
  7. NEOSTIGMINE [Concomitant]
  8. ATROPINE [Concomitant]

REACTIONS (1)
  - LARYNGEAL OEDEMA [None]
